FAERS Safety Report 22234753 (Version 1)
Quarter: 2023Q2

REPORT INFORMATION
  Report Type: Spontaneous
  Country: US (occurrence: None)
  Receive Date: 20230419
  Receipt Date: 20230419
  Transmission Date: 20230721
  Serious: Yes (Other)
  Sender: FDA-Public Use
  Company Number: None

PATIENT
  Age: 50 Year
  Sex: Female
  Weight: 85.5 kg

DRUGS (8)
  1. MACROBID [Suspect]
     Active Substance: NITROFURANTOIN\NITROFURANTOIN MONOHYDRATE
     Dosage: OTHER QUANTITY : 1 CAPSULE(S);?FREQUENCY : EVERY 12 HOURS;?
     Route: 048
     Dates: start: 20230319, end: 20230323
  2. PREDNISONE [Concomitant]
  3. Probiotic QD [Concomitant]
  4. Emergen C (multivitamin) [Concomitant]
  5. Cranberry supplement QD [Concomitant]
  6. Vitamin D [Concomitant]
  7. TYLENOL [Concomitant]
     Active Substance: ACETAMINOPHEN
  8. ADVIL [Concomitant]
     Active Substance: IBUPROFEN

REACTIONS (3)
  - Drug reaction with eosinophilia and systemic symptoms [None]
  - Sinus congestion [None]
  - Upper-airway cough syndrome [None]

NARRATIVE: CASE EVENT DATE: 20230327
